FAERS Safety Report 19320778 (Version 1)
Quarter: 2021Q2

REPORT INFORMATION
  Report Type: Spontaneous
  Country: US (occurrence: US)
  Receive Date: 20210527
  Receipt Date: 20210527
  Transmission Date: 20210717
  Serious: Yes (Hospitalization)
  Sender: FDA-Public Use
  Company Number: US-TEVA-2021-US-1914970

PATIENT
  Age: 11 Month
  Sex: Female

DRUGS (1)
  1. OXYCODONE [Suspect]
     Active Substance: OXYCODONE
     Indication: ACCIDENTAL EXPOSURE TO PRODUCT
     Route: 048

REACTIONS (5)
  - Amylase increased [Recovered/Resolved]
  - Sphincter of Oddi dysfunction [Recovered/Resolved]
  - Accidental exposure to product by child [Unknown]
  - Mental status changes [Recovering/Resolving]
  - Lipase increased [Recovered/Resolved]
